FAERS Safety Report 19385125 (Version 4)
Quarter: 2021Q3

REPORT INFORMATION
  Report Type: Report from Study
  Country: US (occurrence: US)
  Receive Date: 20210607
  Receipt Date: 20210915
  Transmission Date: 20211014
  Serious: Yes (Hospitalization, Other)
  Sender: FDA-Public Use
  Company Number: US-TAKEDA-2021TUS015879

PATIENT
  Age: 4 Year
  Sex: Male

DRUGS (12)
  1. TEDUGLUTIDE [Suspect]
     Active Substance: TEDUGLUTIDE
     Indication: SHORT-BOWEL SYNDROME
     Dosage: 0.835 MILLIGRAM, QD
     Route: 058
     Dates: start: 202102, end: 20210825
  2. TEDUGLUTIDE [Suspect]
     Active Substance: TEDUGLUTIDE
     Dosage: 0.835 MILLIGRAM, QD
     Route: 058
     Dates: start: 20210209
  3. TEDUGLUTIDE [Suspect]
     Active Substance: TEDUGLUTIDE
     Dosage: 0.084 MILLILITER, QD
     Route: 058
     Dates: start: 20210203
  4. TEDUGLUTIDE [Suspect]
     Active Substance: TEDUGLUTIDE
     Dosage: 0.835 MILLIGRAM, QD
     Route: 058
     Dates: start: 20210209
  5. TEDUGLUTIDE [Suspect]
     Active Substance: TEDUGLUTIDE
     Indication: SHORT-BOWEL SYNDROME
     Dosage: 0.835 MILLIGRAM, QD
     Route: 058
     Dates: start: 202102, end: 20210825
  6. TEDUGLUTIDE [Suspect]
     Active Substance: TEDUGLUTIDE
     Indication: SHORT-BOWEL SYNDROME
     Dosage: 0.835 MILLIGRAM, QD
     Route: 058
     Dates: start: 202102, end: 20210825
  7. TEDUGLUTIDE [Suspect]
     Active Substance: TEDUGLUTIDE
     Indication: SHORT-BOWEL SYNDROME
     Dosage: 0.835 MILLIGRAM, QD
     Route: 058
     Dates: start: 202102, end: 20210825
  8. TEDUGLUTIDE [Suspect]
     Active Substance: TEDUGLUTIDE
     Dosage: 0.835 MILLIGRAM, QD
     Route: 058
     Dates: start: 20210209
  9. TEDUGLUTIDE [Suspect]
     Active Substance: TEDUGLUTIDE
     Dosage: 0.084 MILLILITER, QD
     Route: 058
     Dates: start: 20210203
  10. TEDUGLUTIDE [Suspect]
     Active Substance: TEDUGLUTIDE
     Dosage: 0.084 MILLILITER, QD
     Route: 058
     Dates: start: 20210203
  11. TEDUGLUTIDE [Suspect]
     Active Substance: TEDUGLUTIDE
     Dosage: 0.084 MILLILITER, QD
     Route: 058
     Dates: start: 20210203
  12. TEDUGLUTIDE [Suspect]
     Active Substance: TEDUGLUTIDE
     Dosage: 0.835 MILLIGRAM, QD
     Route: 058
     Dates: start: 20210209

REACTIONS (5)
  - Nasopharyngitis [Unknown]
  - Diarrhoea [Unknown]
  - Vascular device infection [Unknown]
  - Drug ineffective [Unknown]
  - Abdominal pain upper [Unknown]

NARRATIVE: CASE EVENT DATE: 20210709
